FAERS Safety Report 24290260 (Version 1)
Quarter: 2024Q3

REPORT INFORMATION
  Report Type: Spontaneous
  Country: US (occurrence: None)
  Receive Date: 20240905
  Receipt Date: 20240905
  Transmission Date: 20241017
  Serious: Yes (Hospitalization)
  Sender: Public
  Company Number: None

PATIENT
  Age: 71 Year
  Sex: Male
  Weight: 58 kg

DRUGS (2)
  1. XELODA [Suspect]
     Active Substance: CAPECITABINE
     Dates: end: 20240806
  2. ELOXATIN [Suspect]
     Active Substance: OXALIPLATIN
     Dates: end: 20240806

REACTIONS (1)
  - Compression fracture [None]

NARRATIVE: CASE EVENT DATE: 20240827
